FAERS Safety Report 12339067 (Version 1)
Quarter: 2016Q2

REPORT INFORMATION
  Report Type: Spontaneous
  Country: US (occurrence: US)
  Receive Date: 20160505
  Receipt Date: 20160505
  Transmission Date: 20160815
  Serious: No
  Sender: FDA-Public Use
  Company Number: US-MAYNE PHARMA-CPS-2015-0014

PATIENT
  Age: 73 Year
  Sex: Female
  Weight: 62.59 kg

DRUGS (3)
  1. LIOTHYRONINE [Suspect]
     Active Substance: LIOTHYRONINE
     Indication: HYPOTHYROIDISM
     Dosage: 25 MCG, QD
     Route: 048
     Dates: start: 2013, end: 2014
  2. LEVOTHYROXINE. [Concomitant]
     Active Substance: LEVOTHYROXINE
     Dosage: UNK
     Dates: start: 2013
  3. LIOTHYRONINE [Suspect]
     Active Substance: LIOTHYRONINE
     Dosage: 12.5 MCG, QD
     Dates: start: 2014

REACTIONS (1)
  - Chills [Recovered/Resolved]

NARRATIVE: CASE EVENT DATE: 201502
